FAERS Safety Report 4685188-X (Version None)
Quarter: 2005Q2

REPORT INFORMATION
  Report Type: 
  Country: None (occurrence: None)
  Receive Date: 20050607
  Receipt Date: 20050602
  Transmission Date: 20051028
  Serious: Yes (Death)
  Sender: FDA-Public Use
  Company Number: 05-05-0807

PATIENT
  Age: 44 Year
  Sex: Male

DRUGS (14)
  1. CLOZAPINE [Suspect]
     Indication: SCHIZOPHRENIA
     Dosage: 800-1000MG QD ORAL
     Route: 048
     Dates: start: 20020101, end: 20050301
  2. DOCUSATE SODIUM [Concomitant]
  3. AMBIEN TABLETS [Concomitant]
  4. FLUPHENAZINE [Concomitant]
  5. DEPAKOTE ER [Concomitant]
  6. MIRTAZAPINE TABLETS [Concomitant]
  7. SEROQUEL [Concomitant]
  8. ADVAIR [Concomitant]
  9. HYDROCHLOROTHIAZIDE [Concomitant]
  10. ATENOLOL [Concomitant]
  11. IPRATROPIUM BROMIDE [Concomitant]
  12. ALBUTEROL SULFATE [Concomitant]
  13. PREDNISONE TAB [Concomitant]
  14. CEBOCAP CAPSULES [Concomitant]

REACTIONS (3)
  - CARDIAC DISORDER [None]
  - DYSPNOEA [None]
  - RESPIRATORY DISORDER [None]
